FAERS Safety Report 11724025 (Version 1)
Quarter: 2015Q4

REPORT INFORMATION
  Report Type: Spontaneous
  Country: DE (occurrence: DE)
  Receive Date: 20151111
  Receipt Date: 20151111
  Transmission Date: 20160304
  Serious: Yes (Death, Hospitalization, Other)
  Sender: FDA-Public Use
  Company Number: DE-BAXTER-2015BAX054697

PATIENT
  Age: 75 Year
  Sex: Male

DRUGS (2)
  1. EXTRANEAL [Suspect]
     Active Substance: CALCIUM CHLORIDE\ICODEXTRIN\MAGNESIUM CHLORIDE\SODIUM CHLORIDE\SODIUM LACTATE
     Route: 033
     Dates: start: 20150424, end: 20151006
  2. EXTRANEAL [Suspect]
     Active Substance: CALCIUM CHLORIDE\ICODEXTRIN\MAGNESIUM CHLORIDE\SODIUM CHLORIDE\SODIUM LACTATE
     Indication: PERITONEAL DIALYSIS
     Dosage: ONE BAG
     Route: 033
     Dates: start: 20140707, end: 20150417

REACTIONS (12)
  - Hepatic vein dilatation [Unknown]
  - Pneumothorax [Unknown]
  - Hepatic congestion [Unknown]
  - Pleural effusion [Unknown]
  - Renal failure [Unknown]
  - Gout [Unknown]
  - Pleurisy [Unknown]
  - Cardiorenal syndrome [Unknown]
  - Cardiomegaly [Unknown]
  - Cardiac failure chronic [Fatal]
  - Myocardial ischaemia [Unknown]
  - Hypertensive heart disease [Unknown]

NARRATIVE: CASE EVENT DATE: 20150415
